FAERS Safety Report 9280957 (Version 2)
Quarter: 2013Q2

REPORT INFORMATION
  Report Type: Spontaneous
  Country: US (occurrence: US)
  Receive Date: 20130509
  Receipt Date: 20130618
  Transmission Date: 20140414
  Serious: Yes (Other)
  Sender: FDA-Public Use
  Company Number: US-GLAXOSMITHKLINE-A1022820A

PATIENT
  Age: 64 Year
  Sex: Female

DRUGS (14)
  1. BENLYSTA [Suspect]
     Indication: PRODUCT USED FOR UNKNOWN INDICATION
     Route: 042
     Dates: start: 20120912
  2. TRIAMCINOLONE [Concomitant]
  3. FOLIC ACID [Concomitant]
  4. METHOTREXATE [Concomitant]
  5. ACTONEL [Concomitant]
  6. PLAQUENIL [Concomitant]
  7. FLEXERIL [Concomitant]
  8. LIDODERM [Concomitant]
  9. TEKTURNA [Concomitant]
  10. HCTZ [Concomitant]
  11. NAPROXEN [Concomitant]
  12. CLONIDINE [Concomitant]
  13. ADVAIR [Concomitant]
  14. VITAMIN D3 [Concomitant]

REACTIONS (2)
  - Systemic lupus erythematosus [Recovered/Resolved]
  - Local swelling [Recovered/Resolved]
